FAERS Safety Report 5304805-4 (Version None)
Quarter: 2007Q2

REPORT INFORMATION
  Report Type: 
  Country: None (occurrence: None)
  Receive Date: 20070423
  Receipt Date: 20070411
  Transmission Date: 20071010
  Serious: Yes (Other)
  Sender: FDA-Public Use
  Company Number: GB-ELI_LILLY_AND_COMPANY-GB200704002240

PATIENT
  Age: 42 Year
  Sex: Female
  Weight: 63.5 kg

DRUGS (7)
  1. YENTREVE [Suspect]
     Indication: STRESS URINARY INCONTINENCE
     Dosage: 40 MG, 2/D
     Route: 048
     Dates: start: 20060829
  2. BECLOMETHASONE DIPROPIONATE [Concomitant]
     Dosage: 2 D/F, 4/D
     Route: 055
     Dates: start: 20030430
  3. CO-CODAMOL [Concomitant]
     Indication: PAIN
     Dosage: 2 MG, 4/D
     Route: 048
     Dates: start: 20011231
  4. OMEPRAZOLE [Concomitant]
     Dosage: 20 MG, DAILY (1/D)
     Route: 048
     Dates: start: 20051031
  5. SALBUTAMOL [Concomitant]
     Dosage: 2 D/F, AS NEEDED
     Route: 055
     Dates: start: 20010828
  6. SALMETEROL [Concomitant]
     Dosage: 2 D/F, 4/D
     Route: 055
     Dates: start: 20060628
  7. TEMAZEPAM [Concomitant]
     Dosage: 10 MG, AS NEEDED
     Route: 048
     Dates: start: 20021125

REACTIONS (5)
  - DRUG DOSE OMISSION [None]
  - DRUG WITHDRAWAL SYNDROME [None]
  - FALL [None]
  - NAUSEA [None]
  - PARAESTHESIA [None]
